FAERS Safety Report 12334624 (Version 2)
Quarter: 2016Q2

REPORT INFORMATION
  Report Type: Spontaneous
  Country: JP (occurrence: JP)
  Receive Date: 20160504
  Receipt Date: 20160511
  Transmission Date: 20160815
  Serious: Yes (Life-Threatening, Hospitalization, Other)
  Sender: FDA-Public Use
  Company Number: JP-MDT-ADR-2016-00423

PATIENT
  Age: 67 Year
  Sex: Male
  Weight: 55 kg

DRUGS (14)
  1. TRAMCET [Suspect]
     Active Substance: ACETAMINOPHEN\TRAMADOL
     Route: 048
     Dates: start: 2015, end: 20160219
  2. NORSPAN [Suspect]
     Active Substance: BUPRENORPHINE
     Dosage: 10MG ONE EVERY WEEK
     Route: 062
     Dates: start: 20151204, end: 201602
  3. GABALON [Suspect]
     Active Substance: BACLOFEN
     Dosage: 50MCG/DAY
     Route: 037
     Dates: start: 20141128
  4. MELOXICAM. [Suspect]
     Active Substance: MELOXICAM
     Dates: start: 2006, end: 20160219
  5. LYRICA [Suspect]
     Active Substance: PREGABALIN
     Dosage: 75MG DAILY
     Route: 048
     Dates: start: 2011, end: 20160219
  6. BENZALIN [Suspect]
     Active Substance: NITRAZEPAM
  7. MICAMLO [Suspect]
     Active Substance: AMLODIPINE BESYLATE\TELMISARTAN
     Route: 048
     Dates: start: 20140124, end: 20160219
  8. GABALON [Suspect]
     Active Substance: BACLOFEN
     Dosage: 600MCG/DAY
     Route: 037
  9. ADOAIR ASPIRATION [Suspect]
     Active Substance: FLUTICASONE PROPIONATE\SALMETEROL XINAFOATE
  10. DEPAS [Suspect]
     Active Substance: ETIZOLAM
  11. SINGULAIR [Suspect]
     Active Substance: MONTELUKAST SODIUM
  12. MUCODYNE [Suspect]
     Active Substance: CARBOCYSTEINE
  13. BECLOMETHASONE DIPROPIONATE [Suspect]
     Active Substance: BECLOMETHASONE DIPROPIONATE
  14. AMUCARE INHALATION [Suspect]
     Active Substance: UNSPECIFIED INGREDIENT
     Route: 055

REACTIONS (40)
  - Amylase increased [Recovering/Resolving]
  - Hypertension [Recovering/Resolving]
  - Red blood cell count decreased [Recovering/Resolving]
  - Dysphagia [Recovering/Resolving]
  - Blood calcium decreased [Recovering/Resolving]
  - Blood potassium increased [Recovering/Resolving]
  - Sepsis [Recovering/Resolving]
  - Pneumonia [Recovering/Resolving]
  - Lymphocyte count decreased [Recovering/Resolving]
  - Blood sodium decreased [Recovering/Resolving]
  - Hypertonia [Recovering/Resolving]
  - Insomnia [Recovering/Resolving]
  - Constipation [Recovering/Resolving]
  - Muscular weakness [Recovering/Resolving]
  - White blood cell count increased [Recovering/Resolving]
  - Blood urea nitrogen/creatinine ratio increased [Recovering/Resolving]
  - Chronic obstructive pulmonary disease [Recovering/Resolving]
  - Blood creatinine increased [Recovering/Resolving]
  - Lymphocyte percentage decreased [Recovering/Resolving]
  - Haematocrit increased [Recovering/Resolving]
  - Renal impairment [Recovering/Resolving]
  - Neutrophil count increased [Recovering/Resolving]
  - Pneumonia aspiration [Recovering/Resolving]
  - Vomiting [Recovering/Resolving]
  - Blood lactate dehydrogenase increased [Recovering/Resolving]
  - Listless [Recovering/Resolving]
  - Protein total decreased [Recovering/Resolving]
  - Inflammation [Recovering/Resolving]
  - Blood urea increased [Recovering/Resolving]
  - Condition aggravated [Recovering/Resolving]
  - Irritability [Recovering/Resolving]
  - Fluid retention [Recovering/Resolving]
  - C-reactive protein increased [Recovering/Resolving]
  - Blood magnesium increased [Recovering/Resolving]
  - Blood potassium decreased [Recovering/Resolving]
  - Acute kidney injury [Recovering/Resolving]
  - Neutrophil percentage increased [Recovering/Resolving]
  - Gastric disorder [Recovering/Resolving]
  - Haematocrit decreased [Recovering/Resolving]
  - Blood creatine phosphokinase MB increased [Recovering/Resolving]

NARRATIVE: CASE EVENT DATE: 20160422
